FAERS Safety Report 9585839 (Version 1)
Quarter: 2013Q4

REPORT INFORMATION
  Report Type: Spontaneous
  Country: GB (occurrence: None)
  Receive Date: 20131001
  Receipt Date: 20131001
  Transmission Date: 20140711
  Serious: Yes (Hospitalization)
  Sender: FDA-Public Use
  Company Number: FK201304380

PATIENT
  Age: 81 Year
  Sex: Female

DRUGS (4)
  1. FUROSEMIDE (FUROSEMIDE) [Suspect]
     Indication: PRODUCT USED FOR UNKNOWN INDICATION
  2. TRIMETHOPRIM (TRIMETHOPRIM) [Suspect]
     Indication: URINARY TRACT INFECTION
     Dates: start: 20111113, end: 20111116
  3. AMXOCILLIN (AMOXCILLIN) [Concomitant]
  4. PARACETAMOL (PARACETAMOL) [Concomitant]

REACTIONS (4)
  - Confusional state [None]
  - Lower respiratory tract infection [None]
  - Renal failure acute [None]
  - Microcytic anaemia [None]
